FAERS Safety Report 16645417 (Version 4)
Quarter: 2019Q3

REPORT INFORMATION
  Report Type: Report from Study
  Country: None (occurrence: BE)
  Receive Date: 20190729
  Receipt Date: 20190826
  Transmission Date: 20191004
  Serious: Yes (Death, Other)
  Sender: FDA-Public Use
  Company Number: BE-ABBVIE-19K-013-2871070-00

PATIENT
  Sex: Male
  Weight: 75.6 kg

DRUGS (11)
  1. VENCLYXTO [Suspect]
     Active Substance: VENETOCLAX
     Route: 048
     Dates: start: 20190706, end: 20190708
  2. TAMSULOSINE [Concomitant]
     Active Substance: TAMSULOSIN HYDROCHLORIDE
     Indication: BENIGN PROSTATIC HYPERPLASIA
  3. VENCLYXTO [Suspect]
     Active Substance: VENETOCLAX
     Route: 048
     Dates: start: 20190620, end: 20190705
  4. FOLVITE [Concomitant]
     Active Substance: FOLIC ACID
     Indication: PRODUCT USED FOR UNKNOWN INDICATION
  5. ZYLORIC [Concomitant]
     Active Substance: ALLOPURINOL
     Indication: HYPERURICAEMIA
  6. VENCLYXTO [Suspect]
     Active Substance: VENETOCLAX
     Route: 048
     Dates: start: 20190709, end: 20190721
  7. VENCLYXTO [Suspect]
     Active Substance: VENETOCLAX
     Indication: ACUTE MYELOID LEUKAEMIA
     Route: 048
     Dates: start: 20190617, end: 20190617
  8. VENCLYXTO [Suspect]
     Active Substance: VENETOCLAX
     Route: 048
     Dates: start: 20190618, end: 20190618
  9. VENCLYXTO [Suspect]
     Active Substance: VENETOCLAX
     Route: 048
     Dates: start: 20190619, end: 20190619
  10. AZACITIDINE. [Concomitant]
     Active Substance: AZACITIDINE
     Indication: PRODUCT USED FOR UNKNOWN INDICATION
  11. PANTOMED (DEXPANTHENOL) [Concomitant]
     Active Substance: DEXPANTHENOL
     Indication: PRODUCT USED FOR UNKNOWN INDICATION

REACTIONS (13)
  - Neutrophil count abnormal [Unknown]
  - Off label use [Unknown]
  - Neutropenia [Fatal]
  - Platelet count abnormal [Unknown]
  - Blood uric acid abnormal [Unknown]
  - Febrile neutropenia [Unknown]
  - White blood cell count abnormal [Unknown]
  - Lymphocyte count abnormal [Unknown]
  - Haemoglobin abnormal [Unknown]
  - Blood calcium abnormal [Unknown]
  - Multiple organ dysfunction syndrome [Fatal]
  - Blood creatinine abnormal [Unknown]
  - Creatinine renal clearance abnormal [Unknown]

NARRATIVE: CASE EVENT DATE: 2019
